FAERS Safety Report 15742918 (Version 3)
Quarter: 2020Q2

REPORT INFORMATION
  Report Type: Spontaneous
  Country: PL (occurrence: PL)
  Receive Date: 20181220
  Receipt Date: 20200505
  Transmission Date: 20200713
  Serious: Yes (Hospitalization, Disabling, Other)
  Sender: FDA-Public Use
  Company Number: PL-JNJFOC-20181212131

PATIENT
  Age: 56 Year
  Sex: Female

DRUGS (14)
  1. PARACETAMOL [Suspect]
     Active Substance: ACETAMINOPHEN
     Indication: ARTHRALGIA
     Dosage: 2600 MG, PER DAY
     Route: 065
  2. TRAMADOL. [Suspect]
     Active Substance: TRAMADOL
     Indication: ARTHRALGIA
     Dosage: 300 MG PER DAY
     Route: 065
  3. CIPROFLOXACIN. [Suspect]
     Active Substance: CIPROFLOXACIN
     Indication: BRONCHITIS
     Dosage: 500 MG BID
     Route: 048
  4. HYDROXYZINE [Suspect]
     Active Substance: HYDROXYZINE HYDROCHLORIDE
     Indication: INSOMNIA
     Dosage: IN THE EVENING
     Route: 065
  5. SERTRALINE [Suspect]
     Active Substance: SERTRALINE HYDROCHLORIDE
     Dosage: 100 MG, PER DAY, IN THE MORNING
     Route: 065
  6. FLUOXETINE [Suspect]
     Active Substance: FLUOXETINE HYDROCHLORIDE
     Indication: DEPRESSION
     Route: 065
  7. SERTRALINE [Suspect]
     Active Substance: SERTRALINE HYDROCHLORIDE
     Indication: DEPRESSION
     Route: 065
  8. TRAZODONE [Suspect]
     Active Substance: TRAZODONE HYDROCHLORIDE
     Indication: INSOMNIA
     Dosage: 75 MG BEFORE BEDTIME
     Route: 065
  9. OMEPRAZOLE. [Interacting]
     Active Substance: OMEPRAZOLE
     Indication: BACK PAIN
     Route: 065
  10. ENALAPRIL [Suspect]
     Active Substance: ENALAPRIL
     Indication: HYPERTENSION
     Dosage: 20 MILLIGRAM, DAILY
     Route: 065
  11. KETOPROFEN. [Suspect]
     Active Substance: KETOPROFEN
     Indication: PAIN
     Dosage: 300 MG, TID
     Route: 048
  12. CELECOXIB. [Suspect]
     Active Substance: CELECOXIB
     Indication: BACK PAIN
     Dosage: 400 MILLIGRAM, DAILY
     Route: 065
  13. TRAMADOL. [Suspect]
     Active Substance: TRAMADOL
     Indication: INSOMNIA
     Dosage: 75 MG, BEFORE GOING TO SLEEP
     Route: 065
  14. INDAPAMIDE SR GENOPTIM [Suspect]
     Active Substance: INDAPAMIDE
     Indication: HYPERTENSION
     Route: 065

REACTIONS (10)
  - Dysphagia [Recovered/Resolved]
  - Drug ineffective [Unknown]
  - Hypophagia [Recovered/Resolved]
  - Serotonin syndrome [Unknown]
  - Drug interaction [Recovered/Resolved]
  - Multiple drug therapy [Recovered/Resolved]
  - Upper gastrointestinal haemorrhage [Unknown]
  - Burning mouth syndrome [Recovered/Resolved]
  - Iron deficiency [Recovered/Resolved]
  - Pain [Recovered/Resolved]
